FAERS Safety Report 19274019 (Version 1)
Quarter: 2021Q2

REPORT INFORMATION
  Report Type: Report from Study
  Country: None (occurrence: IL)
  Receive Date: 20210519
  Receipt Date: 20210519
  Transmission Date: 20210717
  Serious: Yes (Hospitalization)
  Sender: FDA-Public Use
  Company Number: IL-ABBVIE-21K-082-3909274-00

PATIENT
  Age: 54 Year
  Sex: Female

DRUGS (2)
  1. DUODOPA [Suspect]
     Active Substance: CARBIDOPA\LEVODOPA
     Indication: PARKINSON^S DISEASE
     Dosage: MD(ML)  6.0 , CD (ML/H)  2.3, ED (ML)  1.0; REMAINS AT 16
     Route: 050
     Dates: start: 20210406
  2. DUODOPA [Suspect]
     Active Substance: CARBIDOPA\LEVODOPA

REACTIONS (3)
  - Fall [Unknown]
  - Muscular weakness [Unknown]
  - Limb injury [Unknown]

NARRATIVE: CASE EVENT DATE: 2021
